FAERS Safety Report 26133724 (Version 1)
Quarter: 2025Q4

REPORT INFORMATION
  Report Type: Spontaneous
  Country: US (occurrence: US)
  Receive Date: 20251209
  Receipt Date: 20251209
  Transmission Date: 20260118
  Serious: No
  Sender: NOBELPHARMA
  Company Number: US-NPA-2025-AER-02099

PATIENT
  Sex: Male

DRUGS (1)
  1. HYFTOR [Suspect]
     Active Substance: SIROLIMUS
     Indication: Tuberous sclerosis complex
     Route: 061
     Dates: start: 20251016

REACTIONS (2)
  - Drug ineffective [Unknown]
  - Off label use [Unknown]
